FAERS Safety Report 5472374-4 (Version None)
Quarter: 2007Q3

REPORT INFORMATION
  Report Type: 
  Country: None (occurrence: None)
  Receive Date: 20070927
  Receipt Date: 20070913
  Transmission Date: 20080115
  Serious: Yes (Hospitalization, Other)
  Sender: FDA-Public Use
  Company Number: FACT0700186

PATIENT
  Age: 48 Year
  Sex: Female

DRUGS (5)
  1. FACTIVE [Suspect]
     Indication: URINARY TRACT INFECTION
     Dosage: QD, ORAL
     Route: 048
     Dates: start: 20070907, end: 20070909
  2. HYDROCORTISONE [Concomitant]
  3. VALSARTAN [Concomitant]
  4. BYETTA [Concomitant]
  5. MORPHINE [Concomitant]

REACTIONS (10)
  - CATHETER RELATED INFECTION [None]
  - CONVULSION [None]
  - DEPRESSED LEVEL OF CONSCIOUSNESS [None]
  - HALLUCINATION [None]
  - INCOHERENT [None]
  - MOVEMENT DISORDER [None]
  - RENAL FAILURE ACUTE [None]
  - SINUSITIS [None]
  - THIRST [None]
  - URINARY TRACT INFECTION [None]
